FAERS Safety Report 6528814-2 (Version None)
Quarter: 2010Q1

REPORT INFORMATION
  Report Type: 
  Country: None (occurrence: None)
  Receive Date: 20100106
  Receipt Date: 20091231
  Transmission Date: 20100710
  Serious: Yes (Death, Other)
  Sender: FDA-Public Use
  Company Number: CA-CELGENEUS-028-20484-10010081

PATIENT

DRUGS (5)
  1. TINZAPARIN [Suspect]
     Dosage: 175 UNITS/KG
     Route: 065
  2. DALTEPARIN [Suspect]
     Dosage: 200 UNITS/KG
     Route: 065
  3. ENOXAPARIN SODIUM [Suspect]
     Route: 065
  4. ENOXAPARIN SODIUM [Suspect]
     Route: 065
  5. VITAMIN K ANTAGONISTS [Concomitant]
     Indication: DRUG USE FOR UNKNOWN INDICATION
     Route: 065

REACTIONS (6)
  - DEATH [None]
  - DEEP VEIN THROMBOSIS [None]
  - HAEMORRHAGE [None]
  - HAEMORRHAGE INTRACRANIAL [None]
  - PULMONARY EMBOLISM [None]
  - VENA CAVA THROMBOSIS [None]
